FAERS Safety Report 6919855-1 (Version None)
Quarter: 2010Q3

REPORT INFORMATION
  Report Type: 
  Country: None (occurrence: None)
  Receive Date: 20100810
  Receipt Date: 20100810
  Transmission Date: 20110219
  Serious: Yes (Other)
  Sender: FDA-Public Use
  Company Number: None

PATIENT
  Sex: Female
  Weight: 103.6 kg

DRUGS (1)
  1. TAXOL [Suspect]
     Dosage: 380 MG

REACTIONS (1)
  - HOT FLUSH [None]
